FAERS Safety Report 18376284 (Version 3)
Quarter: 2020Q4

REPORT INFORMATION
  Report Type: Report from Study
  Country: US (occurrence: US)
  Receive Date: 20201013
  Receipt Date: 20201228
  Transmission Date: 20210114
  Serious: No
  Sender: FDA-Public Use
  Company Number: NVSC2020US273192

PATIENT
  Sex: Female

DRUGS (4)
  1. PIQRAY [Suspect]
     Active Substance: ALPELISIB
     Route: 048
  2. PIQRAY [Suspect]
     Active Substance: ALPELISIB
     Indication: PRODUCT USED FOR UNKNOWN INDICATION
     Dosage: UNK
     Route: 048
  3. PIQRAY [Suspect]
     Active Substance: ALPELISIB
     Dosage: 2 DF EVERY THREE DAYS
     Route: 065
  4. PIQRAY [Suspect]
     Active Substance: ALPELISIB
     Route: 048

REACTIONS (2)
  - Dyspnoea [Unknown]
  - Illness [Unknown]
